FAERS Safety Report 6138647-7 (Version None)
Quarter: 2009Q1

REPORT INFORMATION
  Report Type: 
  Country: None (occurrence: None)
  Receive Date: 20090326
  Receipt Date: 20090320
  Transmission Date: 20090719
  Serious: Yes (Life-Threatening, Hospitalization, Disabling)
  Sender: FDA-Public Use
  Company Number: WAES 0812FRA00029

PATIENT
  Age: 34 Year
  Sex: Female

DRUGS (19)
  1. CAP VORINOSTAT [Suspect]
     Indication: NON-SMALL CELL LUNG CANCER
     Dosage: 400 MG/DAILY, PO
     Route: 048
     Dates: start: 20081103, end: 20081112
  2. CAP VORINOSTAT [Suspect]
     Indication: NON-SMALL CELL LUNG CANCER
     Dosage: 400 MG/DAILY, PO
     Route: 048
     Dates: start: 20081126, end: 20081203
  3. GEMCITABINE [Suspect]
     Indication: NON-SMALL CELL LUNG CANCER
     Dosage: 1250 MG/M2/D, IV
     Route: 042
     Dates: start: 20081105, end: 20081105
  4. GEMCITABINE [Suspect]
     Indication: NON-SMALL CELL LUNG CANCER
     Dosage: 1250 MG/M2/D, IV
     Route: 042
     Dates: start: 20081112, end: 20081112
  5. GEMCITABINE [Suspect]
     Indication: NON-SMALL CELL LUNG CANCER
     Dosage: 1250 MG/M2/D, IV
     Route: 042
     Dates: start: 20081128, end: 20081128
  6. GEMCITABINE [Suspect]
     Indication: NON-SMALL CELL LUNG CANCER
     Dosage: 1250 MG/M2/D, IV
     Route: 042
     Dates: start: 20081204, end: 20081204
  7. CISPLATIN [Suspect]
     Indication: NON-SMALL CELL LUNG CANCER
     Dosage: 75 MG/M2/D, IV
     Route: 042
     Dates: start: 20081105, end: 20081105
  8. CISPLATIN [Suspect]
     Indication: NON-SMALL CELL LUNG CANCER
     Dosage: 75 MG/M2/D, IV
     Route: 042
     Dates: start: 20081128, end: 20081128
  9. TAB NOMEGESTROL ACETATE [Suspect]
     Indication: CONTRACEPTION
     Dosage: 10 MG/DAILY, PO
     Route: 048
     Dates: start: 20081106, end: 20081128
  10. INJ TRIPTORELIN ACETATE [Suspect]
     Indication: CONTRACEPTION
     Dosage: 3 MG/DAILY, SC
     Route: 058
     Dates: start: 20081106, end: 20081106
  11. ACETAMINOPHEN- PROPOXYPHENE HCL TAB [Concomitant]
  12. APREPITANT [Concomitant]
  13. CARRAGEENAN (+) TITANIUM DIOXIDE (+) ZIN [Concomitant]
  14. KETOPROFEN [Concomitant]
  15. METOCLOPRAMIDE HYDROCHLORIDE [Concomitant]
  16. PANTOPRAZOLE SODIUM [Concomitant]
  17. PREDNISOLONE [Concomitant]
  18. ZOLMITRIPTAN [Concomitant]
  19. ZOPICLONE [Concomitant]

REACTIONS (2)
  - PHLEBITIS [None]
  - PULMONARY EMBOLISM [None]
